FAERS Safety Report 7670131-1 (Version None)
Quarter: 2011Q3

REPORT INFORMATION
  Report Type: 
  Country: None (occurrence: None)
  Receive Date: 20110808
  Receipt Date: 20110730
  Transmission Date: 20111222
  Serious: Yes (Hospitalization, Disabling, Other)
  Sender: FDA-Public Use
  Company Number: BR-ASTRAZENECA-2011SE45987

PATIENT
  Age: 70 Year
  Sex: Male

DRUGS (5)
  1. WARFARIN SODIUM [Concomitant]
     Indication: ANTICOAGULANT THERAPY
  2. ATACAND HCT [Suspect]
     Dosage: 16/12.5 MG
     Route: 048
     Dates: start: 20070101
  3. AMIODARONE [Concomitant]
     Indication: ANTICOAGULANT THERAPY
     Route: 048
  4. ATACAND [Suspect]
     Indication: HYPERTENSION
     Route: 048
     Dates: end: 20070101
  5. ATENOLOL [Suspect]
     Indication: HYPERTENSION
     Route: 048

REACTIONS (3)
  - HYPOKINESIA [None]
  - CEREBROVASCULAR ACCIDENT [None]
  - ASTHENIA [None]
